FAERS Safety Report 4702907-4 (Version None)
Quarter: 2005Q2

REPORT INFORMATION
  Report Type: 
  Country: None (occurrence: None)
  Receive Date: 20050629
  Receipt Date: 20050616
  Transmission Date: 20051028
  Serious: Yes (Death)
  Sender: FDA-Public Use
  Company Number: KR-JNJFOC-20050604792

PATIENT
  Sex: Female
  Weight: 70 kg

DRUGS (7)
  1. SPORANOX [Suspect]
     Route: 042
  2. SPORANOX [Suspect]
     Route: 042
  3. CEFTAZIDIME PENTAHYDRATE [Concomitant]
     Route: 042
     Dates: start: 20050207, end: 20050218
  4. NETILMICIN SULFATE [Concomitant]
     Route: 042
     Dates: start: 20050207, end: 20050217
  5. VANCOMYCIN [Concomitant]
     Route: 042
     Dates: start: 20050212, end: 20050228
  6. PREPENEM [Concomitant]
     Route: 042
     Dates: start: 20050219, end: 20050301
  7. PREPENEM [Concomitant]
     Route: 042
     Dates: start: 20050219, end: 20050301

REACTIONS (3)
  - MULTI-ORGAN FAILURE [None]
  - SEPSIS [None]
  - TRANSAMINASES INCREASED [None]
